FAERS Safety Report 22688284 (Version 4)
Quarter: 2024Q1

REPORT INFORMATION
  Report Type: Spontaneous
  Country: US (occurrence: US)
  Receive Date: 20230710
  Receipt Date: 20240207
  Transmission Date: 20240409
  Serious: Yes (Hospitalization, Other)
  Sender: FDA-Public Use
  Company Number: US-BRISTOL-MYERS SQUIBB COMPANY-2023-096708

PATIENT
  Age: 51 Year
  Sex: Female
  Weight: 67.2 kg

DRUGS (1)
  1. LENALIDOMIDE [Suspect]
     Active Substance: LENALIDOMIDE
     Indication: Plasma cell myeloma
     Dosage: DAILY ON DAYS 1-28 EVERY 28 DAYS
     Route: 048
     Dates: start: 20230204, end: 20231220

REACTIONS (5)
  - Urinary tract infection [Recovering/Resolving]
  - Kidney infection [Recovering/Resolving]
  - Tumour marker increased [Not Recovered/Not Resolved]
  - Drug ineffective [Not Recovered/Not Resolved]
  - Blood iron decreased [Not Recovered/Not Resolved]

NARRATIVE: CASE EVENT DATE: 20230626
